FAERS Safety Report 9214994 (Version 1)
Quarter: 2013Q2

REPORT INFORMATION
  Report Type: Report from Study
  Country: AU (occurrence: AU)
  Receive Date: 20130405
  Receipt Date: 20130405
  Transmission Date: 20140414
  Serious: Yes (Disabling, Other)
  Sender: FDA-Public Use
  Company Number: AU-AMGEN-US273648

PATIENT
  Age: 65 Year
  Sex: Male

DRUGS (6)
  1. DENOSUMAB [Suspect]
     Indication: PROSTATE CANCER
     Dosage: UNK UNK, QMO
     Route: 058
     Dates: start: 20070312, end: 20080310
  2. LUCRIN [Concomitant]
     Dosage: 22.5 MG, UNK
     Route: 058
     Dates: start: 19981217
  3. METFORMIN [Concomitant]
     Dosage: UNK UNK, QD
     Route: 048
  4. AMITRIPTYLINE [Concomitant]
     Dosage: 10 MG, UNK
     Route: 048
  5. FLUOXETINE HYDROCHLORIDE [Concomitant]
     Dosage: UNK UNK, UNK
     Route: 065
  6. EFEXOR [Concomitant]
     Dosage: UNK UNK, UNK
     Route: 065

REACTIONS (1)
  - Colon cancer [Not Recovered/Not Resolved]
